FAERS Safety Report 11474746 (Version 1)
Quarter: 2015Q3

REPORT INFORMATION
  Report Type: Spontaneous
  Country: US (occurrence: None)
  Receive Date: 20150902
  Receipt Date: 20150902
  Transmission Date: 20151125
  Serious: Yes (Hospitalization)
  Sender: FDA-Public Use
  Company Number: A-US2014-108435

PATIENT
  Age: 41 Year
  Sex: Male

DRUGS (10)
  1. VELETRI [Suspect]
     Active Substance: EPOPROSTENOL
     Indication: PULMONARY ARTERIAL HYPERTENSION
     Dosage: 23 NG/KG, PER MIN, INTRAVENOUS
     Route: 042
     Dates: start: 20141029
  2. GABAPENTIN. [Concomitant]
     Active Substance: GABAPENTIN
  3. ADCIRCA [Concomitant]
     Active Substance: TADALAFIL
  4. PEPCID (ALUMINIUM HYDROXIDE, MAGNESIUM TRISILICATE, SODIUM ALGINATE) [Concomitant]
  5. GLIPIZIDE. [Concomitant]
     Active Substance: GLIPIZIDE
  6. LETAIRIS [Concomitant]
     Active Substance: AMBRISENTAN
  7. LASIX [Concomitant]
     Active Substance: FUROSEMIDE
  8. ASPIRIN (ACETYLSALICYLIC ACID) [Concomitant]
     Active Substance: ASPIRIN
  9. PHENERGAN [Concomitant]
     Active Substance: PROMETHAZINE HYDROCHLORIDE
  10. TRAMADOL (TRAMADOL HYDROCHLORIDE) [Concomitant]
     Active Substance: TRAMADOL HYDROCHLORIDE

REACTIONS (6)
  - Catheter removal [None]
  - Sepsis [None]
  - Pyrexia [None]
  - Blood culture positive [None]
  - Chills [None]
  - Staphylococcus test positive [None]

NARRATIVE: CASE EVENT DATE: 20141108
